FAERS Safety Report 6382252-4 (Version None)
Quarter: 2009Q3

REPORT INFORMATION
  Report Type: 
  Country: None (occurrence: None)
  Receive Date: 20090928
  Receipt Date: 20090928
  Transmission Date: 20100115
  Serious: No
  Sender: FDA-Public Use
  Company Number: None

PATIENT
  Age: 76 Year
  Sex: Female
  Weight: 90.2658 kg

DRUGS (1)
  1. FLOVENT HFA [Suspect]
     Indication: RHINITIS ALLERGIC
     Dosage: 220 MCG FOUR PUFFS 2 TIMES A DAY
     Route: 055
     Dates: start: 20090815

REACTIONS (4)
  - GINGIVAL INFECTION [None]
  - MASTICATION DISORDER [None]
  - NECK PAIN [None]
  - PAIN IN JAW [None]
